FAERS Safety Report 21440324 (Version 1)
Quarter: 2022Q4

REPORT INFORMATION
  Report Type: Report from Study
  Country: US (occurrence: US)
  Receive Date: 20221011
  Receipt Date: 20221011
  Transmission Date: 20230112
  Serious: Yes (Other)
  Sender: FDA-Public Use
  Company Number: US-AMNEAL PHARMACEUTICALS-2021-AMRX-05294

PATIENT
  Age: 57 Year
  Sex: Male
  Weight: 99 kg

DRUGS (2)
  1. LIORESAL [Suspect]
     Active Substance: BACLOFEN
     Indication: Muscle spasticity
     Dosage: 57.57002 ?G, \DAY
     Route: 037
     Dates: end: 20200827
  2. LIORESAL [Suspect]
     Active Substance: BACLOFEN
     Indication: Muscle spasms

REACTIONS (3)
  - Therapy non-responder [Recovered/Resolved]
  - Muscle spasms [Recovered/Resolved]
  - Muscle spasticity [Recovered/Resolved]

NARRATIVE: CASE EVENT DATE: 20200827
